FAERS Safety Report 4895623-X (Version None)
Quarter: 2006Q1

REPORT INFORMATION
  Report Type: 
  Country: None (occurrence: None)
  Receive Date: 20060125
  Receipt Date: 20060116
  Transmission Date: 20060701
  Serious: Yes (Hospitalization)
  Sender: FDA-Public Use
  Company Number: 230281K06USA

PATIENT
  Age: 51 Year
  Sex: Female

DRUGS (2)
  1. REBIF (BETAFERON BETA) [Suspect]
     Indication: MULTIPLE SCLEROSIS
     Dosage: 44 MCG, 3 IN 1 WEEKS, SUBCUTANEOUS
     Route: 058
     Dates: start: 20040116, end: 20060113
  2. REBIF (BETAFERON BETA) [Suspect]
     Indication: MULTIPLE SCLEROSIS
     Dosage: 44 MCG, 3 IN 1 WEEKS, SUBCUTANEOUS
     Route: 058
     Dates: start: 20060101

REACTIONS (6)
  - BODY TEMPERATURE INCREASED [None]
  - DRUG INEFFECTIVE [None]
  - INJECTION SITE CELLULITIS [None]
  - INJECTION SITE INDURATION [None]
  - INJECTION SITE PAIN [None]
  - PAIN [None]
